FAERS Safety Report 18606023 (Version 1)
Quarter: 2020Q4

REPORT INFORMATION
  Report Type: Spontaneous
  Country: FR (occurrence: FR)
  Receive Date: 20201211
  Receipt Date: 20201211
  Transmission Date: 20210114
  Serious: Yes (Other)
  Sender: FDA-Public Use
  Company Number: FR-TAKEDA-2020TEU011328AA

PATIENT
  Age: 25 Year
  Sex: Female

DRUGS (10)
  1. RAPIFEN [ALFENTANIL HYDROCHLORIDE] [Concomitant]
     Active Substance: ALFENTANIL HYDROCHLORIDE
     Indication: ANAESTHESIA
     Dosage: 1000 MICROGRAM
     Route: 042
     Dates: start: 20191225, end: 20191225
  2. PERFALGAN [Concomitant]
     Active Substance: ACETAMINOPHEN
     Indication: ANAESTHESIA
     Dosage: 1 GRAM
     Route: 042
     Dates: start: 20191225, end: 20191225
  3. DIPRIVAN [Concomitant]
     Active Substance: PROPOFOL
     Indication: ANAESTHESIA
     Route: 042
     Dates: start: 20191225, end: 20191225
  4. KETAMINE [Suspect]
     Active Substance: KETAMINE
     Indication: ANAESTHESIA
     Dosage: 15 MILLIGRAM
     Route: 042
     Dates: start: 20191225, end: 20191225
  5. CEFAZOLINE [CEFAZOLIN] [Concomitant]
     Active Substance: CEFAZOLIN
     Indication: ANAESTHESIA
     Dosage: UNK
     Route: 042
     Dates: start: 20191225, end: 20191225
  6. SUFENTANIL [Concomitant]
     Active Substance: SUFENTANIL
     Indication: ANAESTHESIA
     Dosage: 10 MICROGRAM
     Route: 042
     Dates: start: 20191225, end: 20191225
  7. DECADRON [DEXAMETHASONE TEBUTATE] [Concomitant]
     Indication: ANAESTHESIA
     Dosage: 8 MILLIGRAM
     Route: 042
     Dates: start: 20191225, end: 20191225
  8. ZOPHREN [ONDANSETRON HYDROCHLORIDE] [Concomitant]
     Active Substance: ONDANSETRON
     Indication: ANAESTHESIA
     Dosage: 4 MILLIGRAM
     Route: 042
     Dates: start: 20191225, end: 20191225
  9. SEVOFLURANE. [Concomitant]
     Active Substance: SEVOFLURANE
     Indication: ANAESTHESIA
     Dosage: UNK
     Route: 042
     Dates: start: 20191225, end: 20191225
  10. SPASFON [PHLOROGLUCINOL;TRIMETHYLPHLOROGLUCINOL] [Concomitant]
     Active Substance: PHLOROGLUCINOL\1,3,5-TRIMETHOXYBENZENE
     Indication: ANAESTHESIA
     Dosage: 80 MILLIGRAM
     Route: 042
     Dates: start: 20191225, end: 20191225

REACTIONS (2)
  - Angioedema [Recovered/Resolved]
  - Urticaria [Recovered/Resolved]

NARRATIVE: CASE EVENT DATE: 20191225
